FAERS Safety Report 7344495-2 (Version None)
Quarter: 2011Q1

REPORT INFORMATION
  Report Type: 
  Country: None (occurrence: None)
  Receive Date: 20110310
  Receipt Date: 20100914
  Transmission Date: 20110831
  Serious: Yes (Hospitalization)
  Sender: FDA-Public Use
  Company Number: US-BAYER-200942933NA

PATIENT
  Sex: Female
  Weight: 63.636 kg

DRUGS (13)
  1. XOPENEX [Concomitant]
  2. COUMADIN [Concomitant]
     Route: 048
     Dates: start: 20080401
  3. ADDERALL 10 [Concomitant]
     Route: 048
  4. ASMANEX TWISTHALER [Concomitant]
  5. YAZ [Suspect]
     Indication: PREMENSTRUAL SYNDROME
     Route: 048
     Dates: start: 20070817, end: 20080423
  6. MUCINEX [Concomitant]
  7. AMBIEN [Concomitant]
     Route: 048
     Dates: end: 20080423
  8. DECADRON [Concomitant]
     Route: 030
  9. SINGULAIR [Concomitant]
  10. ALBUTEROL [Concomitant]
  11. DARVOCET [Concomitant]
  12. LORTAB [Concomitant]
  13. VICODIN [Concomitant]

REACTIONS (7)
  - PULMONARY EMBOLISM [None]
  - HYPOXIA [None]
  - WHEEZING [None]
  - TACHYCARDIA [None]
  - CHEST PAIN [None]
  - DEEP VEIN THROMBOSIS [None]
  - DYSPNOEA [None]
